FAERS Safety Report 4990564-1 (Version None)
Quarter: 2006Q2

REPORT INFORMATION
  Report Type: 
  Country: None (occurrence: None)
  Receive Date: 20060501
  Receipt Date: 20060501
  Transmission Date: 20061013
  Serious: Yes (Other)
  Sender: FDA-Public Use
  Company Number: None

PATIENT
  Sex: Female
  Weight: 90.7194 kg

DRUGS (2)
  1. PREDNISOLONE ACETATE [Suspect]
     Indication: CORNEAL TRANSPLANT
     Dosage: 1 GTTS OS Q1HR
     Route: 047
     Dates: start: 19990101
  2. PREDNISOLONE ACETATE [Suspect]
     Dosage: 1 GTT OD QD
     Route: 047

REACTIONS (3)
  - DERMATITIS ALLERGIC [None]
  - PHARMACEUTICAL PRODUCT COMPLAINT [None]
  - THERAPEUTIC RESPONSE UNEXPECTED WITH DRUG SUBSTITUTION [None]
